FAERS Safety Report 21292371 (Version 1)
Quarter: 2022Q3

REPORT INFORMATION
  Report Type: Report from Study
  Country: CN (occurrence: CN)
  Receive Date: 20220905
  Receipt Date: 20220905
  Transmission Date: 20221026
  Serious: Yes (Death, Other)
  Sender: FDA-Public Use
  Company Number: CN-SUNPHARMA-2022R1-353015AA

PATIENT
  Age: 40 Year
  Sex: Female

DRUGS (8)
  1. LENALIDOMIDE [Suspect]
     Active Substance: LENALIDOMIDE
     Indication: Central nervous system lymphoma
     Dosage: 25 MILLIGRAM, DAILY
     Route: 065
     Dates: start: 20210729, end: 20211115
  2. TEMOZOLOMIDE [Suspect]
     Active Substance: TEMOZOLOMIDE
     Indication: Central nervous system lymphoma
     Dosage: 150 MILLIGRAM/SQ. METER, DAILY ON DAYS 4 TO 8
     Route: 065
     Dates: start: 20210729, end: 20211115
  3. TUCIDINOSTAT [Suspect]
     Active Substance: TUCIDINOSTAT
     Indication: Central nervous system lymphoma
     Dosage: UNK
     Route: 065
     Dates: start: 20210729, end: 20211115
  4. METHOTREXATE [Suspect]
     Active Substance: METHOTREXATE
     Indication: Central nervous system lymphoma
     Dosage: UNK HIGH-DOSE  3.5 G/ M2) OVER 4 HOURS ON DAY 2
     Route: 065
     Dates: start: 20210729, end: 20211115
  5. ORELABRUTINIB [Suspect]
     Active Substance: ORELABRUTINIB
     Indication: Central nervous system lymphoma
     Dosage: 150 MILLIGRAM, DAILY
     Route: 048
     Dates: start: 20210729, end: 20211115
  6. RITUXIMAB [Suspect]
     Active Substance: RITUXIMAB
     Indication: Central nervous system lymphoma
     Dosage: UNK,375 MG/M2 ON DAY 1
     Route: 042
     Dates: start: 20210729, end: 20211115
  7. LEUCOVORIN [Concomitant]
     Active Substance: LEUCOVORIN
     Indication: Central nervous system lymphoma
     Dosage: 50 MILLIGRAM, QID
     Route: 030
     Dates: start: 20210729, end: 20211115
  8. PREDNISONE [Concomitant]
     Active Substance: PREDNISONE
     Indication: Central nervous system lymphoma
     Dosage: 10 MILLIGRAM, WEEKLY
     Route: 065
     Dates: start: 20210729, end: 20211115

REACTIONS (1)
  - Neoplasm progression [Fatal]
